FAERS Safety Report 6417794-6 (Version None)
Quarter: 2009Q4

REPORT INFORMATION
  Report Type: 
  Country: None (occurrence: None)
  Receive Date: 20091028
  Receipt Date: 20091021
  Transmission Date: 20100525
  Serious: Yes (Disabling)
  Sender: FDA-Public Use
  Company Number: CA-ASTRAZENECA-2009SE21800

PATIENT
  Sex: Female

DRUGS (4)
  1. PULMICORT [Suspect]
     Indication: BRONCHITIS
     Route: 055
     Dates: start: 20090914, end: 20090921
  2. ACCURETIC [Concomitant]
     Dosage: 20 MG-12.5 DAILY
  3. LUMIGAN [Concomitant]
  4. AVELOX [Concomitant]
     Indication: BRONCHITIS
     Dates: start: 20090914, end: 20090921

REACTIONS (4)
  - AGEUSIA [None]
  - DEPRESSED MOOD [None]
  - FEELING ABNORMAL [None]
  - PAROSMIA [None]
